FAERS Safety Report 8942142 (Version 1)
Quarter: 2012Q4

REPORT INFORMATION
  Report Type: 
  Country: IE (occurrence: IE)
  Receive Date: 20121130
  Receipt Date: 20121130
  Transmission Date: 20130627
  Serious: Yes (Other)
  Sender: FDA-Public Use
  Company Number: IE-GLAXOSMITHKLINE-B0848824A

PATIENT
  Age: 65 Year
  Sex: Male

DRUGS (12)
  1. VOTRIENT [Suspect]
     Indication: RENAL CANCER
     Route: 048
  2. CLARITHROMYCIN [Suspect]
     Indication: LOWER RESPIRATORY TRACT INFECTION
     Dosage: 500MG Per day
     Route: 065
  3. MOTILIUM [Concomitant]
  4. GLUCOPHAGE [Concomitant]
  5. LOSARTAN [Concomitant]
  6. CLOPIDOGREL [Concomitant]
  7. ISTIN [Concomitant]
  8. NUPRIN [Concomitant]
  9. ATORVASTATIN [Concomitant]
  10. MYCOSTATIN [Concomitant]
  11. IMODIUM [Concomitant]
  12. NEBIVOLOL [Concomitant]

REACTIONS (2)
  - Lower respiratory tract infection [Unknown]
  - Labelled drug-drug interaction medication error [Unknown]
